FAERS Safety Report 9306204 (Version 3)
Quarter: 2013Q2

REPORT INFORMATION
  Report Type: Report from Study
  Country: IE (occurrence: IE)
  Receive Date: 20130523
  Receipt Date: 20130607
  Transmission Date: 20140414
  Serious: Yes (Hospitalization)
  Sender: FDA-Public Use
  Company Number: IE-GLAXOSMITHKLINE-B0892342A

PATIENT
  Age: 44 Year
  Sex: Female

DRUGS (7)
  1. LAPATINIB [Suspect]
     Indication: BREAST CANCER
     Dosage: 1000MG PER DAY
     Route: 048
     Dates: start: 20130503, end: 20130508
  2. TAXOTERE [Suspect]
     Indication: BREAST CANCER
     Route: 042
     Dates: start: 20130503
  3. CARBOPLATIN [Suspect]
     Indication: BREAST CANCER
     Route: 042
     Dates: start: 20130503
  4. TRASTUZUMAB [Suspect]
     Indication: BREAST CANCER
     Route: 042
     Dates: start: 20130503
  5. TAZOCIN [Concomitant]
     Indication: PROPHYLAXIS
     Route: 042
     Dates: start: 20130509
  6. FLAGYL [Concomitant]
     Indication: PROPHYLAXIS
     Route: 042
     Dates: start: 20130509
  7. LOPERAMIDE [Concomitant]
     Indication: PROPHYLAXIS
     Route: 048
     Dates: start: 20130503, end: 20130508

REACTIONS (1)
  - Enteritis [Recovered/Resolved]
